FAERS Safety Report 7200557-1 (Version None)
Quarter: 2010Q4

REPORT INFORMATION
  Report Type: 
  Country: None (occurrence: None)
  Receive Date: 20101228
  Receipt Date: 20101215
  Transmission Date: 20110411
  Serious: Yes (Other)
  Sender: FDA-Public Use
  Company Number: US-PFIZER INC-2010175666

PATIENT
  Age: 81 Year
  Sex: Male
  Weight: 130.61 kg

DRUGS (13)
  1. FIBERCON [Suspect]
     Dosage: 2 TABLETS, 1X/DAY
     Route: 048
     Dates: start: 20101213, end: 20101214
  2. HUMALOG [Concomitant]
  3. TRAMADOL [Concomitant]
  4. GABAPENTIN [Concomitant]
  5. AVODART [Concomitant]
  6. TERAZOSIN [Concomitant]
  7. PYRIDOXINE [Concomitant]
  8. BENAZEPRIL [Concomitant]
  9. CALCITRIOL [Concomitant]
  10. FUROSEMIDE [Concomitant]
  11. MONTELUKAST SODIUM [Concomitant]
  12. METOPROLOL [Concomitant]
  13. ACIPHEX [Concomitant]

REACTIONS (1)
  - BLOOD GLUCOSE INCREASED [None]
